FAERS Safety Report 20133431 (Version 1)
Quarter: 2021Q4

REPORT INFORMATION
  Report Type: Spontaneous
  Country: NO (occurrence: NO)
  Receive Date: 20211201
  Receipt Date: 20211201
  Transmission Date: 20220303
  Serious: Yes (Other)
  Sender: FDA-Public Use
  Company Number: None

PATIENT
  Age: 30 Year
  Sex: Female

DRUGS (4)
  1. RITUXIMAB [Suspect]
     Active Substance: RITUXIMAB
     Indication: Sjogren^s syndrome
     Route: 042
     Dates: start: 20210908
  2. ARCOXIA [Concomitant]
     Active Substance: ETORICOXIB
     Indication: Sacroiliitis
     Route: 048
     Dates: start: 2017
  3. CARBOMER [Concomitant]
     Active Substance: CARBOMER
     Indication: Sjogren^s syndrome
     Route: 047
     Dates: start: 202103
  4. CYCLOSPORINE [Concomitant]
     Active Substance: CYCLOSPORINE
     Indication: Sjogren^s syndrome
     Route: 047
     Dates: start: 202103

REACTIONS (5)
  - Cytopenia [Recovered/Resolved]
  - Swelling [Recovered/Resolved]
  - Rash maculo-papular [Recovered/Resolved]
  - Fatigue [Recovered/Resolved]
  - Arthralgia [Recovered/Resolved]

NARRATIVE: CASE EVENT DATE: 20210915
